FAERS Safety Report 4282546-2 (Version None)
Quarter: 2004Q1

REPORT INFORMATION
  Report Type: 
  Country: None (occurrence: None)
  Receive Date: 20040129
  Receipt Date: 20040120
  Transmission Date: 20041129
  Serious: Yes (Hospitalization)
  Sender: FDA-Public Use
  Company Number: 204270

PATIENT
  Age: 58 Year
  Sex: Male
  Weight: 72.6 kg

DRUGS (3)
  1. XOLAIR [Suspect]
     Indication: ASTHMA
     Dosage: 300 MG, 1/MONTH, SUBCUTANEOUS
     Route: 058
     Dates: start: 20031205, end: 20040106
  2. ADVAIR (SALMETEROL XINAFOATE, FLUTICASONE PROPIONATE) [Concomitant]
  3. SINGULAIR [Concomitant]

REACTIONS (1)
  - APPENDICITIS [None]
